FAERS Safety Report 25209917 (Version 2)
Quarter: 2025Q2

REPORT INFORMATION
  Report Type: Report from Study
  Country: CA (occurrence: CA)
  Receive Date: 20250417
  Receipt Date: 20250508
  Transmission Date: 20250717
  Serious: Yes (Other)
  Sender: BIOGEN
  Company Number: CA-BIOGEN-2025BI01301952

PATIENT
  Sex: Male

DRUGS (2)
  1. TYSABRI [Suspect]
     Active Substance: NATALIZUMAB
     Indication: Multiple sclerosis
     Route: 050
     Dates: start: 20170426
  2. TYSABRI [Suspect]
     Active Substance: NATALIZUMAB
     Route: 050
     Dates: start: 20170426

REACTIONS (5)
  - Craniofacial fracture [Not Recovered/Not Resolved]
  - Hypertension [Unknown]
  - Dental restoration failure [Not Recovered/Not Resolved]
  - Foreign body in respiratory tract [Unknown]
  - Headache [Unknown]
